FAERS Safety Report 7053035-7 (Version None)
Quarter: 2010Q4

REPORT INFORMATION
  Report Type: 
  Country: None (occurrence: None)
  Receive Date: 20101020
  Receipt Date: 20101013
  Transmission Date: 20110411
  Serious: Yes (Hospitalization, Other)
  Sender: FDA-Public Use
  Company Number: US-ELI_LILLY_AND_COMPANY-US200910004057

PATIENT
  Sex: Male
  Weight: 113.38 kg

DRUGS (16)
  1. BYETTA [Suspect]
     Dosage: 10 UG, 2/D
     Dates: start: 20080515, end: 20080722
  2. LASIX [Concomitant]
     Indication: FLUID RETENTION
     Dosage: 40 MG, DAILY (1/D)
     Route: 048
  3. METFORMIN HCL [Concomitant]
     Indication: DIABETES MELLITUS
     Dosage: 1000 MG, 2/D
     Route: 048
  4. LISINOPRIL [Concomitant]
     Dosage: 40 MG, DAILY (1/D)
     Route: 048
  5. SPIRIVA [Concomitant]
     Dosage: 18 U, DAILY (1/D)
     Route: 055
  6. CARVEDILOL [Concomitant]
     Indication: CORONARY ARTERY DISEASE
     Dosage: 25 MG, 2/D
     Route: 048
  7. PRAVASTATIN [Concomitant]
     Dosage: 40 MG, DAILY (1/D)
     Route: 048
  8. PROAIR HFA [Concomitant]
     Dosage: 90 U, AS NEEDED
     Route: 055
  9. AMLODIPINE [Concomitant]
     Dosage: 5 MG, DAILY (1/D)
     Route: 048
  10. LOVENOX [Concomitant]
     Dosage: 40 MG, EACH EVENING
     Route: 058
  11. ALBUTEROL [Concomitant]
     Dosage: UNK, AS NEEDED
  12. ASPIRIN [Concomitant]
     Dosage: 325 MG, DAILY (1/D)
  13. ABILIFY [Concomitant]
  14. GLIMEPIRIDE [Concomitant]
     Indication: DIABETES MELLITUS
     Dosage: 2 MG, DAILY (1/D)
     Route: 048
  15. PEPCID [Concomitant]
     Dosage: 20 MG, 2/D
     Route: 048
  16. ACETAMINOPHEN [Concomitant]
     Dosage: 650 MG, AS NEEDED

REACTIONS (3)
  - PANCREATIC MASS [None]
  - PANCREATITIS ACUTE [None]
  - RENAL DISORDER [None]
